FAERS Safety Report 14727473 (Version 1)
Quarter: 2018Q2

REPORT INFORMATION
  Report Type: Spontaneous
  Country: US (occurrence: US)
  Receive Date: 20180402
  Receipt Date: 20180402
  Transmission Date: 20180711
  Serious: No
  Sender: FDA-Public Use
  Company Number: None

PATIENT
  Age: 61 Year
  Sex: Female

DRUGS (1)
  1. IBRANCE [Suspect]
     Active Substance: PALBOCICLIB
     Indication: BREAST CANCER
     Dosage: 100 MGDAILY DAYS 1-21 Q 28  DAYS  ORAL                      ??20-SEP-2018 -12-MAR-2018
     Route: 048
     Dates: end: 20180312

REACTIONS (1)
  - Disease progression [None]

NARRATIVE: CASE EVENT DATE: 20180302
